FAERS Safety Report 4700619-4 (Version None)
Quarter: 2005Q2

REPORT INFORMATION
  Report Type: 
  Country: None (occurrence: None)
  Receive Date: 20050627
  Receipt Date: 20050614
  Transmission Date: 20051028
  Serious: Yes (Hospitalization)
  Sender: FDA-Public Use
  Company Number: 2005088676

PATIENT
  Age: 73 Year
  Sex: Female

DRUGS (1)
  1. CLINDAMYCIN HYDROCHLORIDE [Suspect]
     Indication: LOCALISED INFECTION
     Dosage: 900 MG (300 MG, TID), ORAL
     Route: 048
     Dates: start: 20050517, end: 20050524

REACTIONS (1)
  - HEPATITIS [None]
